FAERS Safety Report 15954251 (Version 2)
Quarter: 2019Q1

REPORT INFORMATION
  Report Type: Spontaneous
  Country: DE (occurrence: DE)
  Receive Date: 20190212
  Receipt Date: 20190301
  Transmission Date: 20190417
  Serious: Yes (Hospitalization, Other)
  Sender: FDA-Public Use
  Company Number: DE-PFIZER INC-2019059171

PATIENT
  Age: 55 Year
  Sex: Female

DRUGS (7)
  1. VALDOXAN [Concomitant]
     Active Substance: AGOMELATINE
     Dosage: 25 MG (0-0-2)
  2. METFORMIN [Concomitant]
     Active Substance: METFORMIN HYDROCHLORIDE
     Dosage: 1000 MG (0-0-1)
  3. DULOXETINE. [Concomitant]
     Active Substance: DULOXETINE
     Dosage: 30 MG (2X1)
  4. VENLAFAXINE HCL [Suspect]
     Active Substance: VENLAFAXINE HYDROCHLORIDE
     Dosage: UNK
     Dates: start: 201610, end: 201802
  5. BISOPROLOL [Concomitant]
     Active Substance: BISOPROLOL
     Dosage: 5 MG, 1X2
  6. ALLOPURINOL. [Concomitant]
     Active Substance: ALLOPURINOL
     Dosage: UNK
  7. GEVILON [Concomitant]
     Active Substance: GEMFIBROZIL
     Dosage: UNK

REACTIONS (4)
  - Aggression [Not Recovered/Not Resolved]
  - Gait disturbance [Not Recovered/Not Resolved]
  - Psychogenic movement disorder [Not Recovered/Not Resolved]
  - Speech disorder [Not Recovered/Not Resolved]

NARRATIVE: CASE EVENT DATE: 201701
